FAERS Safety Report 9070523 (Version 1)
Quarter: 2013Q1

REPORT INFORMATION
  Report Type: Spontaneous
  Country: US (occurrence: US)
  Receive Date: 20130129
  Receipt Date: 20130129
  Transmission Date: 20140127
  Serious: No
  Sender: FDA-Public Use
  Company Number: US-ABBOTT-12P-163-0925377-00

PATIENT
  Sex: 0

DRUGS (3)
  1. HUMIRA 40 MG/0.8 ML PEN [Suspect]
     Indication: PRODUCT USED FOR UNKNOWN INDICATION
  2. HUMIRA 40 MG/0.8 ML PEN [Suspect]
  3. HUMIRA 40 MG/0.8 ML PEN [Suspect]

REACTIONS (7)
  - Immune system disorder [Unknown]
  - Skin discolouration [Unknown]
  - Injection site bruising [Unknown]
  - Lymphadenopathy [Unknown]
  - Drug ineffective [Unknown]
  - Lymphadenopathy [Unknown]
  - Condition aggravated [Unknown]
